FAERS Safety Report 9859297 (Version 2)
Quarter: 2014Q1

REPORT INFORMATION
  Report Type: Spontaneous
  Country: US (occurrence: US)
  Receive Date: 20140131
  Receipt Date: 20140221
  Transmission Date: 20141002
  Serious: Yes (Other)
  Sender: FDA-Public Use
  Company Number: US-PFIZER INC-2014029112

PATIENT
  Sex: Male
  Weight: 111 kg

DRUGS (4)
  1. CELEBREX [Suspect]
     Indication: ARTHRITIS
     Dosage: 200 MG, 2X/DAY
     Route: 048
     Dates: start: 1998
  2. COUMADIN [Concomitant]
     Indication: COAGULOPATHY
     Dosage: UNK
     Dates: start: 199711
  3. RAMIPRIL [Concomitant]
     Indication: BLOOD PRESSURE ABNORMAL
     Dosage: UNK
  4. OMEPRAZOLE [Concomitant]
     Indication: DYSPEPSIA
     Dosage: UNK

REACTIONS (4)
  - Diabetes mellitus [Not Recovered/Not Resolved]
  - Blood cholesterol abnormal [Unknown]
  - Neuropathy peripheral [Unknown]
  - Hypoaesthesia [Unknown]
